FAERS Safety Report 9252664 (Version 3)
Quarter: 2013Q2

REPORT INFORMATION
  Report Type: Spontaneous
  Country: RU (occurrence: RU)
  Receive Date: 20130424
  Receipt Date: 20130530
  Transmission Date: 20140414
  Serious: Yes (Other)
  Sender: FDA-Public Use
  Company Number: RU-PFIZER INC-2013123225

PATIENT
  Age: 62 Year
  Sex: Female

DRUGS (2)
  1. LIPRIMAR [Suspect]
     Indication: HYPERCHOLESTEROLAEMIA
     Dosage: 20 MG, ONCE A DAY
     Route: 048
     Dates: start: 201302, end: 201302
  2. LIPRIMAR [Suspect]
     Dosage: 20 MG, ONCE A DAY
     Dates: start: 201302, end: 201302

REACTIONS (3)
  - Gastrointestinal pain [Recovered/Resolved]
  - Diarrhoea [Recovered/Resolved]
  - Faeces discoloured [Recovered/Resolved]
